FAERS Safety Report 14310599 (Version 10)
Quarter: 2018Q4

REPORT INFORMATION
  Report Type: Report from Study
  Country: JP (occurrence: JP)
  Receive Date: 20171220
  Receipt Date: 20181115
  Transmission Date: 20190204
  Serious: Yes (Hospitalization, Other)
  Sender: FDA-Public Use
  Company Number: JP-BEH-2017085988

PATIENT
  Age: 83 Year
  Sex: Male
  Weight: 43 kg

DRUGS (9)
  1. LANSOPRAZOLE. [Concomitant]
     Active Substance: LANSOPRAZOLE
     Dosage: UNK
     Route: 048
     Dates: start: 20171206
  2. CEFTRIAXONE. [Concomitant]
     Active Substance: CEFTRIAXONE
     Dosage: UNK
     Route: 065
     Dates: start: 20171213, end: 20171218
  3. LIXIANA [Concomitant]
     Active Substance: EDOXABAN TOSYLATE
     Indication: ATRIAL FIBRILLATION
     Dosage: 30 MG, QD
     Route: 048
     Dates: start: 20171214
  4. WARFARIN POTASSIUM [Concomitant]
     Active Substance: WARFARIN POTASSIUM
     Indication: ATRIAL FIBRILLATION
     Dosage: 3 MG, OD
     Route: 065
     Dates: start: 201605, end: 20171203
  5. MENESIT [Concomitant]
     Active Substance: CARBIDOPA\LEVODOPA
     Route: 048
  6. BERIPLEX P/N [Suspect]
     Active Substance: COAGULATION FACTOR IX HUMAN\COAGULATION FACTOR VII HUMAN\COAGULATION FACTOR X HUMAN\PROTEIN C\PROTEIN S HUMAN\PROTHROMBIN
     Indication: HAEMORRHAGE
     Dosage: 1000 IU, TOT
     Route: 042
     Dates: start: 20171204, end: 20171204
  7. WARFARIN POTASSIUM [Concomitant]
     Active Substance: WARFARIN POTASSIUM
     Indication: PROPHYLAXIS
  8. LIXIANA [Concomitant]
     Active Substance: EDOXABAN TOSYLATE
     Indication: PROPHYLAXIS
  9. KAYTWO N [Suspect]
     Active Substance: MENATETRENONE
     Indication: PROCOAGULANT THERAPY
     Dosage: 10 MG, TOT
     Route: 042
     Dates: start: 20171204, end: 20171204

REACTIONS (8)
  - Cerebral infarction [Recovered/Resolved]
  - Cerebral artery embolism [Recovered/Resolved]
  - Cerebral artery occlusion [Recovered/Resolved]
  - Hypokalaemia [Recovered/Resolved]
  - Pneumonia [Recovering/Resolving]
  - Embolic stroke [Recovered/Resolved]
  - Monoplegia [Recovered/Resolved]
  - Seizure [Recovered/Resolved]

NARRATIVE: CASE EVENT DATE: 20171206
